FAERS Safety Report 22397301 (Version 9)
Quarter: 2025Q1

REPORT INFORMATION
  Report Type: Report from Study
  Country: IN (occurrence: IN)
  Receive Date: 20230602
  Receipt Date: 20250130
  Transmission Date: 20250408
  Serious: Yes (Other)
  Sender: ROCHE
  Company Number: IN-ROCHE-3283338

PATIENT
  Age: 74 Year
  Sex: Male
  Weight: 88.5 kg

DRUGS (14)
  1. TECENTRIQ [Suspect]
     Active Substance: ATEZOLIZUMAB
     Indication: Hepatocellular carcinoma
     Route: 040
  2. TECENTRIQ [Suspect]
     Active Substance: ATEZOLIZUMAB
     Route: 040
     Dates: start: 20220827
  3. TECENTRIQ [Suspect]
     Active Substance: ATEZOLIZUMAB
     Route: 040
  4. TECENTRIQ [Suspect]
     Active Substance: ATEZOLIZUMAB
     Route: 040
  5. TECENTRIQ [Suspect]
     Active Substance: ATEZOLIZUMAB
     Route: 040
  6. TECENTRIQ [Suspect]
     Active Substance: ATEZOLIZUMAB
     Route: 040
  7. TECENTRIQ [Suspect]
     Active Substance: ATEZOLIZUMAB
     Route: 040
  8. AVASTIN [Suspect]
     Active Substance: BEVACIZUMAB
     Indication: Hepatocellular carcinoma
     Route: 040
     Dates: start: 20220827
  9. AVASTIN [Suspect]
     Active Substance: BEVACIZUMAB
     Route: 040
  10. AVASTIN [Suspect]
     Active Substance: BEVACIZUMAB
     Route: 040
  11. AVASTIN [Suspect]
     Active Substance: BEVACIZUMAB
     Route: 040
  12. AVASTIN [Suspect]
     Active Substance: BEVACIZUMAB
     Route: 040
  13. AVASTIN [Suspect]
     Active Substance: BEVACIZUMAB
     Route: 040
  14. AVASTIN [Suspect]
     Active Substance: BEVACIZUMAB
     Route: 040

REACTIONS (9)
  - Skin toxicity [Unknown]
  - Blood pressure systolic increased [Unknown]
  - Pyrexia [Unknown]
  - Fungal infection [Unknown]
  - Skin disorder [Not Recovered/Not Resolved]
  - Hypertension [Unknown]
  - Rales [Unknown]
  - Off label use [Unknown]
  - Disease progression [Unknown]
